FAERS Safety Report 6087342-1 (Version None)
Quarter: 2009Q1

REPORT INFORMATION
  Report Type: 
  Country: None (occurrence: None)
  Receive Date: 20090223
  Receipt Date: 20090217
  Transmission Date: 20090719
  Serious: Yes (Other)
  Sender: FDA-Public Use
  Company Number: B0556731A

PATIENT
  Age: 10 Year
  Sex: Male

DRUGS (5)
  1. RELENZA [Suspect]
     Indication: INFLUENZA
     Dosage: 10MG TWICE PER DAY
     Route: 055
     Dates: start: 20090121, end: 20090123
  2. MUCODYNE [Suspect]
     Indication: COUGH
     Dosage: 250MG THREE TIMES PER DAY
     Route: 048
     Dates: start: 20090121, end: 20090125
  3. ASVERIN [Suspect]
     Indication: COUGH
     Dosage: 20MG THREE TIMES PER DAY
     Route: 048
     Dates: start: 20090121, end: 20090125
  4. TALION [Suspect]
     Dosage: 5MG TWICE PER DAY
     Route: 048
     Dates: start: 20090121, end: 20090125
  5. CALONAL [Concomitant]
     Route: 048

REACTIONS (4)
  - ABNORMAL BEHAVIOUR [None]
  - CRYING [None]
  - INCOHERENT [None]
  - OCULAR HYPERAEMIA [None]
